FAERS Safety Report 4934895-X (Version None)
Quarter: 2006Q1

REPORT INFORMATION
  Report Type: 
  Country: None (occurrence: None)
  Receive Date: 20060302
  Receipt Date: 20060215
  Transmission Date: 20060701
  Serious: Yes (Hospitalization)
  Sender: FDA-Public Use
  Company Number: 2005-0009043

PATIENT
  Age: 53 Year
  Sex: Female

DRUGS (7)
  1. HEPSERA [Suspect]
     Indication: HEPATITIS B
     Dosage: 10 MG, 1 IN 1 D, ORAL
     Route: 048
     Dates: start: 20051125
  2. LAMIVUDINE [Concomitant]
  3. TEPRENONE (TEPRENONE) [Concomitant]
  4. OMEPRAZOLE [Concomitant]
  5. TACROLIMUS (TACROLIMUS) [Concomitant]
  6. EBASTINE [Concomitant]
  7. NEO-MINOPHAGEN C(GLYCYRRHIZIC ACID, AMMONIUM SALT) [Concomitant]

REACTIONS (3)
  - DRUG ERUPTION [None]
  - GRAFT VERSUS HOST DISEASE [None]
  - RASH PRURITIC [None]
